FAERS Safety Report 6020428-6 (Version None)
Quarter: 2008Q4

REPORT INFORMATION
  Report Type: 
  Country: None (occurrence: None)
  Receive Date: 20081226
  Receipt Date: 20081217
  Transmission Date: 20090506
  Serious: Yes (Life-Threatening, Other)
  Sender: FDA-Public Use
  Company Number: US-BAYER-200814930BCC

PATIENT
  Age: 35 Year
  Sex: Female
  Weight: 71 kg

DRUGS (7)
  1. ALKA SELTZER PLUS COLD + COUGH EFFERVESCENT TABLETS [Suspect]
     Indication: NASOPHARYNGITIS
     Dosage: TOTAL DAILY DOSE: 2 DF  UNIT DOSE: 2 DF
     Route: 048
     Dates: start: 20081216, end: 20081216
  2. CLARITIN-D [Concomitant]
  3. ALKA-SELTZER PLUS COLD + COUGH LIQUID [Concomitant]
  4. ALKA-SELTZER PLUS COLD AND COUGH LIQUID GELS [Concomitant]
  5. ALKA-SELTZER PLUS COLD ORANGE ZEST [Concomitant]
  6. ALKA-SELTZER PLUS COLD CHERRY BURST [Concomitant]
  7. ALKA-SELTZER PLUS MUCUS AND CONGESTION [Concomitant]

REACTIONS (7)
  - DYSPNOEA [None]
  - HYPERSENSITIVITY [None]
  - MALAISE [None]
  - MUSCLE TIGHTNESS [None]
  - OEDEMA PERIPHERAL [None]
  - SWELLING FACE [None]
  - THROAT TIGHTNESS [None]
